FAERS Safety Report 19268791 (Version 1)
Quarter: 2021Q2

REPORT INFORMATION
  Report Type: Report from Study
  Country: IT (occurrence: IT)
  Receive Date: 20210517
  Receipt Date: 20210517
  Transmission Date: 20210717
  Serious: Yes (Life-Threatening)
  Sender: FDA-Public Use
  Company Number: IT-PFIZER INC-2021491099

PATIENT
  Age: 51 Year
  Sex: Female

DRUGS (1)
  1. ZITROMAX [Suspect]
     Active Substance: AZITHROMYCIN
     Dosage: 1 DF, SINGLE
     Route: 042
     Dates: start: 20210327, end: 20210327

REACTIONS (3)
  - Tachycardia [Recovering/Resolving]
  - Hypotension [Recovering/Resolving]
  - Sensory disturbance [Recovering/Resolving]

NARRATIVE: CASE EVENT DATE: 20210327
